FAERS Safety Report 8257882-5 (Version None)
Quarter: 2012Q1

REPORT INFORMATION
  Report Type: 
  Country: None (occurrence: None)
  Receive Date: 20111211
  Receipt Date: 20111005
  Transmission Date: 20120608
  Serious: No
  Sender: FDA-Public Use
  Company Number: 201110011

PATIENT
  Age: 73 Year
  Sex: Male
  Weight: 86.1834 kg

DRUGS (3)
  1. XIAFLEX (CLOSTRIDIAL COLLAGENASE) [Suspect]
     Indication: DUPUYTREN'S CONTRACTURE
     Dosage: 1 IN 1 D, INTRALESIONAL
     Route: 026
     Dates: start: 20110808, end: 20110808
  2. VITAMINS (VITAMINS NOS) [Concomitant]
  3. MINOCYCLINE HCL [Concomitant]

REACTIONS (2)
  - PAIN IN EXTREMITY [None]
  - ARTHROPATHY [None]
